FAERS Safety Report 14177281 (Version 1)
Quarter: 2017Q4

REPORT INFORMATION
  Report Type: Other
  Country: TR (occurrence: TR)
  Receive Date: 20171110
  Receipt Date: 20171110
  Transmission Date: 20180321
  Serious: Yes (Hospitalization, Other)
  Sender: FDA-Public Use
  Company Number: TR-AJANTA PHARMA USA INC.-2033791

PATIENT
  Age: 37 Year
  Sex: Female

DRUGS (1)
  1. OLANZAPINE (ANDA 204320) [Suspect]
     Active Substance: OLANZAPINE
     Indication: PSYCHOTIC SYMPTOM

REACTIONS (5)
  - Psychotic disorder [Recovered/Resolved]
  - Exposure during pregnancy [Recovered/Resolved]
  - Negativism [Recovered/Resolved]
  - Bladder dilatation [Recovered/Resolved]
  - Urinary retention [Recovered/Resolved]

NARRATIVE: CASE EVENT DATE: 20170717
